FAERS Safety Report 8052975-X (Version None)
Quarter: 2012Q1

REPORT INFORMATION
  Report Type: 
  Country: None (occurrence: None)
  Receive Date: 20120118
  Receipt Date: 20120110
  Transmission Date: 20120608
  Serious: Yes (Hospitalization)
  Sender: FDA-Public Use
  Company Number: TH-JNJFOC-20120100575

PATIENT
  Sex: Male
  Weight: 68 kg

DRUGS (7)
  1. TRIHEXYPHENIDYL HCL [Concomitant]
     Indication: EXTRAPYRAMIDAL DISORDER
     Dates: start: 20110830, end: 20110920
  2. DRAMAMINE [Concomitant]
     Indication: NAUSEA
     Dates: start: 20110927
  3. LORAZEPAM [Concomitant]
     Indication: AGITATION
     Dates: start: 20110920
  4. INVEGA SUSTENNA [Suspect]
     Indication: SCHIZOPHRENIA
     Route: 030
     Dates: start: 20110906
  5. LORAZEPAM [Concomitant]
     Indication: INSOMNIA
     Dates: start: 20110920
  6. TRIHEXYPHENIDYL HCL [Concomitant]
     Dates: start: 20110920
  7. BETAMETHASONE [Concomitant]
     Dates: start: 20110830

REACTIONS (1)
  - PSYCHOTIC DISORDER [None]
